FAERS Safety Report 6858877-6 (Version None)
Quarter: 2010Q3

REPORT INFORMATION
  Report Type: 
  Country: None (occurrence: None)
  Receive Date: 20100719
  Receipt Date: 20080417
  Transmission Date: 20110219
  Serious: No
  Sender: FDA-Public Use
  Company Number: US-PFIZER INC-2008014204

PATIENT
  Sex: Female
  Weight: 70.454 kg

DRUGS (3)
  1. CHANTIX [Suspect]
     Indication: SMOKING CESSATION THERAPY
     Dates: start: 20071227, end: 20080101
  2. BUPROPION [Concomitant]
  3. VITAMINS [Concomitant]

REACTIONS (2)
  - RASH PRURITIC [None]
  - URTICARIA [None]
